FAERS Safety Report 7909456-0 (Version None)
Quarter: 2011Q4

REPORT INFORMATION
  Report Type: 
  Country: None (occurrence: None)
  Receive Date: 20111111
  Receipt Date: 20111107
  Transmission Date: 20120403
  Serious: Yes (Hospitalization)
  Sender: FDA-Public Use
  Company Number: FR-CEPHALON-2011005094

PATIENT
  Sex: Male

DRUGS (4)
  1. MORPHINE SULFATE [Suspect]
     Indication: CANCER PAIN
  2. SKENAN-LP [Suspect]
     Indication: CANCER PAIN
     Route: 048
  3. METHOCARBAMOL [Concomitant]
     Route: 048
  4. ACTIQ [Suspect]
     Indication: CANCER PAIN
     Route: 002
     Dates: start: 20110901

REACTIONS (2)
  - UNEVALUABLE EVENT [None]
  - DRUG PRESCRIBING ERROR [None]
